FAERS Safety Report 7457415-7 (Version None)
Quarter: 2011Q2

REPORT INFORMATION
  Report Type: 
  Country: None (occurrence: None)
  Receive Date: 20110426
  Receipt Date: 20110411
  Transmission Date: 20111010
  Serious: Yes (Other)
  Sender: FDA-Public Use
  Company Number: AUR-APL-2011-01298

PATIENT
  Age: 69 Year
  Sex: Female

DRUGS (10)
  1. AMIODARONE HCL [Concomitant]
  2. VALSARTAN [Concomitant]
  3. GABAPENTIN [Concomitant]
  4. CLONIDINE [Concomitant]
  5. GLYBURIDE AND METFORMIN HYDROCHLORIDE [Suspect]
     Indication: TYPE 2 DIABETES MELLITUS
  6. FUROSEMIDE [Concomitant]
  7. ATORVASTATIN [Concomitant]
  8. AMLODIPINE BESYLATE [Concomitant]
  9. LISINOPRIL [Concomitant]
  10. OMEPRAZOLE [Concomitant]

REACTIONS (15)
  - BODY TEMPERATURE DECREASED [None]
  - DRUG CLEARANCE DECREASED [None]
  - BLOOD CHLORIDE DECREASED [None]
  - NAUSEA [None]
  - TOXICITY TO VARIOUS AGENTS [None]
  - KUSSMAUL RESPIRATION [None]
  - MALAISE [None]
  - RHONCHI [None]
  - BLOOD PRESSURE SYSTOLIC INCREASED [None]
  - MUCOSAL DRYNESS [None]
  - LACTIC ACIDOSIS [None]
  - HYPERKALAEMIA [None]
  - BLOOD GLUCOSE DECREASED [None]
  - ABDOMINAL TENDERNESS [None]
  - ABDOMINAL PAIN [None]
